FAERS Safety Report 7249870-2 (Version None)
Quarter: 2011Q1

REPORT INFORMATION
  Report Type: 
  Country: None (occurrence: None)
  Receive Date: 20110128
  Receipt Date: 20100713
  Transmission Date: 20110831
  Serious: No
  Sender: FDA-Public Use
  Company Number: A0870206A

PATIENT
  Age: 60 Year
  Sex: Female

DRUGS (1)
  1. BUPROPION HCL [Suspect]
     Indication: DEPRESSION
     Route: 048
     Dates: start: 20080101, end: 20080101

REACTIONS (5)
  - FEELING ABNORMAL [None]
  - THINKING ABNORMAL [None]
  - HEADACHE [None]
  - DELUSION [None]
  - CRYING [None]
